FAERS Safety Report 10560504 (Version 2)
Quarter: 2018Q4

REPORT INFORMATION
  Report Type: Report from Study
  Country: US (occurrence: US)
  Receive Date: 20141103
  Receipt Date: 20181214
  Transmission Date: 20190204
  Serious: Yes (Other)
  Sender: FDA-Public Use
  Company Number: US-SA-2014SA018719

PATIENT
  Age: 53 Year
  Sex: Female

DRUGS (1)
  1. ALGLUCOSIDASE ALFA [Suspect]
     Active Substance: ALGLUCOSIDASE ALFA
     Indication: GLYCOGEN STORAGE DISEASE TYPE II
     Dosage: UNK, UNK
     Route: 041
     Dates: start: 20110302

REACTIONS (17)
  - Blood gases abnormal [Not Recovered/Not Resolved]
  - Feeling abnormal [Recovered/Resolved]
  - Scoliosis [Not Recovered/Not Resolved]
  - Urinary incontinence [Not Recovered/Not Resolved]
  - Foot fracture [Not Recovered/Not Resolved]
  - Fall [Not Recovered/Not Resolved]
  - Bronchitis [Not Recovered/Not Resolved]
  - Anal incontinence [Not Recovered/Not Resolved]
  - Limb injury [Not Recovered/Not Resolved]
  - Muscle disorder [Not Recovered/Not Resolved]
  - Therapeutic response decreased [Unknown]
  - Spinal nerve stimulator implantation [Not Recovered/Not Resolved]
  - Sleep apnoea syndrome [Not Recovered/Not Resolved]
  - Hypothyroidism [Not Recovered/Not Resolved]
  - Hepatic enzyme increased [Not Recovered/Not Resolved]
  - Hepatomegaly [Not Recovered/Not Resolved]
  - Accident [Not Recovered/Not Resolved]

NARRATIVE: CASE EVENT DATE: 2016
